FAERS Safety Report 8929058 (Version 2)
Quarter: 2012Q4

REPORT INFORMATION
  Report Type: 
  Country: JP (occurrence: JP)
  Receive Date: 20121127
  Receipt Date: 20121220
  Transmission Date: 20130627
  Serious: Yes (Other)
  Sender: FDA-Public Use
  Company Number: JP-009507513-1211JPN008713

PATIENT
  Age: 11 Year
  Sex: Female

DRUGS (3)
  1. GASTER [Suspect]
     Route: 048
  2. BAKTAR [Concomitant]
     Route: 048
  3. CORTICOSTEROIDS (UNSPECIFIED) [Concomitant]

REACTIONS (3)
  - Heart rate decreased [Unknown]
  - Oxygen saturation decreased [Unknown]
  - Off label use [Unknown]
